FAERS Safety Report 5110020-X (Version None)
Quarter: 2006Q3

REPORT INFORMATION
  Report Type: 
  Country: None (occurrence: None)
  Receive Date: 20060921
  Receipt Date: 20060911
  Transmission Date: 20061208
  Serious: Yes (Hospitalization)
  Sender: FDA-Public Use
  Company Number: PHNU2006DE03092

PATIENT
  Age: 57 Year
  Sex: Male

DRUGS (2)
  1. LEPONEX [Suspect]
     Dosage: 500 MG/DAY
     Route: 048
     Dates: end: 20060701
  2. LEPONEX [Suspect]
     Dosage: 450 MG/DAY
     Route: 048
     Dates: start: 20060701

REACTIONS (4)
  - ANTIPSYCHOTIC DRUG LEVEL ABOVE THERAPEUTIC [None]
  - CARDIAC DISORDER [None]
  - DRUG LEVEL INCREASED [None]
  - WRONG TECHNIQUE IN DRUG USAGE PROCESS [None]
